FAERS Safety Report 13427663 (Version 2)
Quarter: 2017Q2

REPORT INFORMATION
  Report Type: Spontaneous
  Country: GB (occurrence: GB)
  Receive Date: 20170411
  Receipt Date: 20170501
  Transmission Date: 20170830
  Serious: Yes (Hospitalization)
  Sender: FDA-Public Use
  Company Number: GB-TEVA-755349ACC

PATIENT
  Sex: Male

DRUGS (4)
  1. BACLOFEN. [Suspect]
     Active Substance: BACLOFEN
     Indication: PRODUCT USED FOR UNKNOWN INDICATION
     Dosage: UNK
     Route: 038
  2. MORPHINE [Suspect]
     Active Substance: MORPHINE
     Indication: PRODUCT USED FOR UNKNOWN INDICATION
     Dosage: 30MG/ML
     Route: 038
  3. MORPHINE [Suspect]
     Active Substance: MORPHINE
     Dosage: 40 MG/ML
     Route: 038
  4. MORPHINE [Suspect]
     Active Substance: MORPHINE
     Dosage: 3000 UG/ML
     Route: 038

REACTIONS (3)
  - Autonomic dysreflexia [Unknown]
  - Cerebral haemorrhage [Unknown]
  - Overdose [Unknown]

NARRATIVE: CASE EVENT DATE: 2016
